FAERS Safety Report 8460563 (Version 1)
Quarter: 2012Q4

REPORT INFORMATION
  Report Type: 
  Country: US (occurrence: US)
  Receive Date: 20120912
  Receipt Date: 20120912
  Transmission Date: 20130627
  Serious: No
  Sender: FDA-Public Use
  Company Number: US-BAYER-2012-020468

PATIENT
  Age: 90 Year
  Sex: Female
  Weight: 56 kg

DRUGS (8)
  1. ALEVE CAPLET/TABLET,MIDOL EXTENDED RELIEF CAPLET [Suspect]
     Indication: HEADACHE
     Dosage: 1 DF, PRN
     Route: 048
     Dates: start: 201202
  2. ACETYLSALICYLIC ACID({=100 MG) [Concomitant]
     Route: 048
  3. HYDROCHLOROTHIAZIDE W/LOSARTAN [Concomitant]
  4. METOPROLOL SUCCINATE [Concomitant]
  5. AMLODIPINE [Concomitant]
  6. NORVASC [Concomitant]
  7. CENTRUM SILVER [Concomitant]
  8. CALTRATE [Concomitant]

REACTIONS (2)
  - Drug ineffective [None]
  - Pain [None]
